FAERS Safety Report 5952418-3 (Version None)
Quarter: 2008Q4

REPORT INFORMATION
  Report Type: 
  Country: None (occurrence: None)
  Receive Date: 20081022
  Receipt Date: 20080626
  Transmission Date: 20090506
  Serious: Yes (Other)
  Sender: FDA-Public Use
  Company Number: ALL1-2008-01888

PATIENT
  Age: 55 Year
  Sex: Female

DRUGS (1)
  1. VYVANSE [Suspect]
     Dosage: 70 MG, 1X/DAY: QD, ORAL
     Route: 048
     Dates: end: 20080101

REACTIONS (2)
  - GASTROINTESTINAL DISORDER [None]
  - WEIGHT DECREASED [None]
